FAERS Safety Report 26096872 (Version 1)
Quarter: 2025Q4

REPORT INFORMATION
  Report Type: Spontaneous
  Country: US (occurrence: US)
  Receive Date: 20251127
  Receipt Date: 20251127
  Transmission Date: 20260117
  Serious: Yes (Hospitalization)
  Sender: MERCK SHARP & DOHME LLC
  Company Number: US-009507513-2352945

PATIENT
  Age: 67 Year
  Sex: Female

DRUGS (9)
  1. KEYTRUDA [Suspect]
     Active Substance: PEMBROLIZUMAB
     Indication: Triple negative breast cancer
     Dosage: TIME INTERVAL: CYCLICAL: CYCLE 1
     Route: 042
     Dates: start: 20250912, end: 20250912
  2. KEYTRUDA [Suspect]
     Active Substance: PEMBROLIZUMAB
     Indication: Triple negative breast cancer
     Dosage: TIME INTERVAL: CYCLICAL: CYCLE 2
     Route: 042
     Dates: start: 20251003, end: 20251003
  3. KEYTRUDA [Suspect]
     Active Substance: PEMBROLIZUMAB
     Indication: Triple negative breast cancer
     Dosage: TIME INTERVAL: CYCLICAL: CYCLE 3
     Route: 042
     Dates: start: 20251024, end: 20251024
  4. CARBOPLATIN [Suspect]
     Active Substance: CARBOPLATIN
     Indication: Triple negative breast cancer
     Dosage: TIME INTERVAL: CYCLICAL: CYCLE 1
     Dates: start: 20250912, end: 20250912
  5. CARBOPLATIN [Suspect]
     Active Substance: CARBOPLATIN
     Indication: Triple negative breast cancer
     Dosage: TIME INTERVAL: CYCLICAL: CYCLE 2
     Dates: start: 20251003, end: 20251003
  6. CARBOPLATIN [Suspect]
     Active Substance: CARBOPLATIN
     Indication: Triple negative breast cancer
     Dosage: TIME INTERVAL: CYCLICAL: CYCLE 3
     Dates: start: 20251024, end: 20251024
  7. TAXOTERE [Suspect]
     Active Substance: DOCETAXEL
     Indication: Triple negative breast cancer
     Dosage: TIME INTERVAL: CYCLICAL: CYCLE 1
     Dates: start: 20250912, end: 20250912
  8. TAXOTERE [Suspect]
     Active Substance: DOCETAXEL
     Indication: Triple negative breast cancer
     Dosage: TIME INTERVAL: CYCLICAL: CYCLE 2
     Dates: start: 20251003, end: 20251003
  9. TAXOTERE [Suspect]
     Active Substance: DOCETAXEL
     Indication: Triple negative breast cancer
     Dosage: TIME INTERVAL: CYCLICAL: CYCLE 3
     Dates: start: 20251024, end: 20251024

REACTIONS (5)
  - Vocal cord paralysis [Unknown]
  - Dyspnoea exertional [Unknown]
  - Aphasia [Unknown]
  - Vision blurred [Unknown]
  - Eyelid ptosis [Unknown]

NARRATIVE: CASE EVENT DATE: 20250101
